FAERS Safety Report 13898866 (Version 2)
Quarter: 2017Q3

REPORT INFORMATION
  Report Type: Report from Study
  Country: IN (occurrence: IN)
  Receive Date: 20170823
  Receipt Date: 20170901
  Transmission Date: 20171127
  Serious: Yes (Hospitalization)
  Sender: FDA-Public Use
  Company Number: IN-MYLANLABS-2017M1052104

PATIENT
  Age: 36 Year
  Sex: Male

DRUGS (1)
  1. METHOTREXATE. [Suspect]
     Active Substance: METHOTREXATE
     Indication: IGA NEPHROPATHY
     Dosage: 10MG DAILY FOR LESS THAN 1 MONTH
     Route: 048

REACTIONS (2)
  - Pancytopenia [Recovering/Resolving]
  - Incorrect dosage administered [Recovering/Resolving]
